FAERS Safety Report 12845949 (Version 1)
Quarter: 2016Q4

REPORT INFORMATION
  Report Type: Spontaneous
  Country: US (occurrence: US)
  Receive Date: 20161014
  Receipt Date: 20161014
  Transmission Date: 20170207
  Serious: No
  Sender: FDA-Public Use
  Company Number: US-PAR PHARMACEUTICAL, INC-2016SCPR015580

PATIENT

DRUGS (1)
  1. FENTANYL TRANSDERMAL SYSTEM [Suspect]
     Active Substance: FENTANYL
     Indication: PAIN
     Dosage: 1 PATCH, EVERY 48 HOURS
     Route: 062

REACTIONS (7)
  - Product quality issue [Unknown]
  - Application site reaction [Recovered/Resolved]
  - Wrong technique in product usage process [Unknown]
  - Application site irritation [Recovered/Resolved]
  - Hyperhidrosis [Unknown]
  - Drug ineffective [Recovered/Resolved]
  - Product adhesion issue [Unknown]
